FAERS Safety Report 4995257-2 (Version None)
Quarter: 2006Q2

REPORT INFORMATION
  Report Type: 
  Country: None (occurrence: None)
  Receive Date: 20060508
  Receipt Date: 20051003
  Transmission Date: 20061013
  Serious: Yes (Hospitalization)
  Sender: FDA-Public Use
  Company Number: US-MERCK-0510USA02286

PATIENT
  Age: 58 Year
  Sex: Female
  Weight: 87 kg

DRUGS (15)
  1. VIOXX [Suspect]
     Indication: ARTHRITIS
     Route: 048
     Dates: start: 20001201, end: 20020601
  2. VIOXX [Suspect]
     Route: 048
     Dates: start: 20001201, end: 20020601
  3. VIOXX [Suspect]
     Route: 048
     Dates: start: 20040301, end: 20040501
  4. VIOXX [Suspect]
     Route: 048
     Dates: start: 20040301, end: 20040501
  5. MONOPRIL [Concomitant]
     Route: 048
  6. ALBUTEROL [Concomitant]
     Route: 055
  7. SPIRONOLACTONE [Concomitant]
     Route: 048
  8. NITROGLYCERIN [Concomitant]
     Route: 048
  9. GLYBURIDE [Concomitant]
     Route: 048
  10. PATANOL [Concomitant]
     Route: 065
  11. METFORMIN [Concomitant]
     Route: 048
  12. ISOSORBIDE [Concomitant]
     Route: 048
  13. LIPITOR [Concomitant]
     Route: 048
  14. ASPIRIN [Concomitant]
     Route: 048
  15. VITAMIN E [Concomitant]
     Route: 048

REACTIONS (41)
  - ABDOMINAL PAIN UPPER [None]
  - ACUTE MYOCARDIAL INFARCTION [None]
  - ANAEMIA [None]
  - ANGINA PECTORIS [None]
  - ANGINA UNSTABLE [None]
  - BACK PAIN [None]
  - BLOOD PRESSURE INCREASED [None]
  - COMPLEX REGIONAL PAIN SYNDROME [None]
  - CORONARY ARTERY DISEASE [None]
  - CORONARY ARTERY RESTENOSIS [None]
  - CYSTITIS [None]
  - DECREASED APPETITE [None]
  - DEHYDRATION [None]
  - DIARRHOEA [None]
  - DIZZINESS [None]
  - DYSPNOEA [None]
  - DYSURIA [None]
  - ELECTROCARDIOGRAM POOR R-WAVE PROGRESSION [None]
  - ELECTROCARDIOGRAM ST SEGMENT ABNORMAL [None]
  - FATIGUE [None]
  - HYPOPERFUSION [None]
  - IMPAIRED HEALING [None]
  - MITRAL VALVE INCOMPETENCE [None]
  - PALPITATIONS [None]
  - PELVIC PAIN [None]
  - PERICARDIAL EFFUSION [None]
  - PERIPHERAL VASCULAR DISORDER [None]
  - POLLAKIURIA [None]
  - RESPIRATORY DISORDER [None]
  - ROTATOR CUFF SYNDROME [None]
  - SINUSITIS [None]
  - SYNCOPE [None]
  - SYNCOPE VASOVAGAL [None]
  - TACHYCARDIA [None]
  - TENDONITIS [None]
  - TRICUSPID VALVE INCOMPETENCE [None]
  - TROPONIN INCREASED [None]
  - URTICARIA [None]
  - VENTRICULAR DYSFUNCTION [None]
  - VENTRICULAR EXTRASYSTOLES [None]
  - WOUND INFECTION [None]
